FAERS Safety Report 4508234-2 (Version None)
Quarter: 2004Q4

REPORT INFORMATION
  Report Type: 
  Country: None (occurrence: None)
  Receive Date: 20041118
  Receipt Date: 20041104
  Transmission Date: 20050328
  Serious: Yes (Hospitalization)
  Sender: FDA-Public Use
  Company Number: FR-2004-033990

PATIENT
  Sex: Male

DRUGS (1)
  1. REFLUDAN [Suspect]
     Indication: HEPARIN-INDUCED THROMBOCYTOPENIA
     Dosage: 0.01 MG/KG, IV BOLUS
     Route: 040
     Dates: start: 20041015

REACTIONS (1)
  - HAEMORRHOIDAL HAEMORRHAGE [None]
